FAERS Safety Report 6239367-0 (Version None)
Quarter: 2009Q2

REPORT INFORMATION
  Report Type: 
  Country: None (occurrence: None)
  Receive Date: 20090622
  Receipt Date: 20090403
  Transmission Date: 20091009
  Serious: Yes (Hospitalization)
  Sender: FDA-Public Use
  Company Number: TR-ELI_LILLY_AND_COMPANY-TR200906003260

PATIENT
  Sex: Female

DRUGS (4)
  1. HUMALOG MIX 50/50 [Suspect]
     Indication: DIABETES MELLITUS
     Dosage: 28 IU, EACH MORNING
     Route: 058
     Dates: start: 20090325
  2. HUMALOG MIX 50/50 [Suspect]
     Dosage: 17 U, LUNCH TIME
     Route: 058
     Dates: start: 20090325
  3. HUMALOG MIX 50/50 [Suspect]
     Dosage: 20 IU, EACH EVENING
     Route: 058
     Dates: start: 20090325
  4. HUMALOG MIX 75/25 [Suspect]
     Dosage: UNK, UNKNOWN
     Route: 065

REACTIONS (3)
  - HEADACHE [None]
  - HYPERGLYCAEMIA [None]
  - HYPOGLYCAEMIA [None]
